FAERS Safety Report 7988353-9 (Version None)
Quarter: 2011Q4

REPORT INFORMATION
  Report Type: 
  Country: None (occurrence: None)
  Receive Date: 20111216
  Receipt Date: 20111205
  Transmission Date: 20120403
  Serious: Yes (Hospitalization, Disabling)
  Sender: FDA-Public Use
  Company Number: US-MYLANLABS-2007S1008737

PATIENT
  Sex: Female

DRUGS (1)
  1. PHENYTOIN SODIUM [Suspect]
     Route: 048
     Dates: start: 20050917

REACTIONS (11)
  - TOXIC EPIDERMAL NECROLYSIS [None]
  - ACUTE GENERALISED EXANTHEMATOUS PUSTULOSIS [None]
  - PYREXIA [None]
  - DERMATITIS BULLOUS [None]
  - STEVENS-JOHNSON SYNDROME [None]
  - SCAR [None]
  - SWELLING [None]
  - RASH [None]
  - ERYTHEMA MULTIFORME [None]
  - EATING DISORDER [None]
  - EOSINOPHILIA [None]
